FAERS Safety Report 9275965 (Version 1)
Quarter: 2013Q2

REPORT INFORMATION
  Report Type: Report from Study
  Country: US (occurrence: US)
  Receive Date: 20130507
  Receipt Date: 20130507
  Transmission Date: 20140414
  Serious: Yes (Hospitalization)
  Sender: FDA-Public Use
  Company Number: US-US-EMD SERONO, INC.-7209083

PATIENT
  Age: 73 Year
  Sex: Male

DRUGS (1)
  1. REBIF [Suspect]
     Indication: MULTIPLE SCLEROSIS
     Route: 058
     Dates: start: 20091029

REACTIONS (4)
  - Aortic aneurysm [Recovering/Resolving]
  - Post procedural pneumonia [Recovering/Resolving]
  - Bronchial disorder [Recovering/Resolving]
  - Pyrexia [Unknown]
